FAERS Safety Report 6595104-1 (Version None)
Quarter: 2010Q1

REPORT INFORMATION
  Report Type: 
  Country: None (occurrence: None)
  Receive Date: 20100212
  Receipt Date: 20100201
  Transmission Date: 20100710
  Serious: Yes (Hospitalization)
  Sender: FDA-Public Use
  Company Number: 2010SP006511

PATIENT
  Age: 40 Year
  Sex: Male

DRUGS (10)
  1. MIRTAZAPINE [Suspect]
     Indication: DEPRESSED MOOD
     Dosage: 30 MG; PO, ; QOD; PO
     Route: 048
     Dates: end: 20091231
  2. MIRTAZAPINE [Suspect]
     Indication: DEPRESSION
     Dosage: 30 MG; PO, ; QOD; PO
     Route: 048
     Dates: end: 20091231
  3. MIRTAZAPINE [Suspect]
     Indication: PSYCHIATRIC SYMPTOM
     Dosage: 30 MG; PO, ; QOD; PO
     Route: 048
     Dates: end: 20091231
  4. MIRTAZAPINE [Suspect]
     Indication: DEPRESSED MOOD
     Dosage: 30 MG; PO, ; QOD; PO
     Route: 048
     Dates: start: 20091101
  5. MIRTAZAPINE [Suspect]
     Indication: DEPRESSION
     Dosage: 30 MG; PO, ; QOD; PO
     Route: 048
     Dates: start: 20091101
  6. MIRTAZAPINE [Suspect]
     Indication: PSYCHIATRIC SYMPTOM
     Dosage: 30 MG; PO, ; QOD; PO
     Route: 048
     Dates: start: 20091101
  7. ACAMPROSATE CALCIUM [Concomitant]
  8. ANTABUSE [Concomitant]
  9. DISULFIRAM [Concomitant]
  10. FLUOXETINE [Concomitant]

REACTIONS (8)
  - AGITATION [None]
  - CONDITION AGGRAVATED [None]
  - DISORIENTATION [None]
  - DRUG WITHDRAWAL SYNDROME [None]
  - HALLUCINATIONS, MIXED [None]
  - PANIC ATTACK [None]
  - PARANOIA [None]
  - PSYCHOTIC DISORDER [None]
